FAERS Safety Report 5386778-1 (Version None)
Quarter: 2007Q3

REPORT INFORMATION
  Report Type: 
  Country: None (occurrence: None)
  Receive Date: 20070713
  Receipt Date: 20070702
  Transmission Date: 20080115
  Serious: Yes (Hospitalization, Disabling)
  Sender: FDA-Public Use
  Company Number: US-PFIZER INC-2006113836

PATIENT
  Sex: Female
  Weight: 82.6 kg

DRUGS (3)
  1. CELEBREX [Suspect]
     Indication: OSTEOARTHRITIS
     Dates: start: 20021001, end: 20031001
  2. BEXTRA [Suspect]
     Indication: RHEUMATOID ARTHRITIS
     Route: 065
     Dates: start: 20030410, end: 20030501
  3. VIOXX [Suspect]
     Route: 048
     Dates: start: 20031001, end: 20040930

REACTIONS (1)
  - CEREBROVASCULAR ACCIDENT [None]
